FAERS Safety Report 7807966-8 (Version None)
Quarter: 2011Q4

REPORT INFORMATION
  Report Type: 
  Country: None (occurrence: None)
  Receive Date: 20111011
  Receipt Date: 20111011
  Transmission Date: 20120403
  Serious: Yes (Hospitalization, Other)
  Sender: FDA-Public Use
  Company Number: None

PATIENT
  Age: 70 Year
  Sex: Male
  Weight: 142.88 kg

DRUGS (1)
  1. AMIODARONE HYDROCHLORIDE [Suspect]
     Indication: CARDIAC FIBRILLATION
     Dosage: 200MG

REACTIONS (6)
  - HAEMOGLOBIN DECREASED [None]
  - RETINAL OEDEMA [None]
  - VISION BLURRED [None]
  - PALLOR [None]
  - RETINAL HAEMORRHAGE [None]
  - HAEMORRHAGE [None]
